FAERS Safety Report 9703539 (Version 1)
Quarter: 2013Q4

REPORT INFORMATION
  Report Type: Report from Study
  Country: CA (occurrence: CA)
  Receive Date: 20131122
  Receipt Date: 20131122
  Transmission Date: 20140711
  Serious: Yes (Other)
  Sender: FDA-Public Use
  Company Number: CA-JNJFOC-20131110579

PATIENT
  Sex: Female
  Weight: 48 kg

DRUGS (8)
  1. REMICADE [Suspect]
     Indication: ANKYLOSING SPONDYLITIS
     Route: 042
     Dates: start: 20130606
  2. INDOCID [Concomitant]
     Route: 048
  3. PANTOPRAZOLE [Concomitant]
     Route: 048
  4. CYCLOBENZAPRINE [Concomitant]
     Route: 048
  5. CRESTOR [Concomitant]
     Route: 048
  6. ASA [Concomitant]
     Route: 048
  7. VITAMIN D [Concomitant]
     Route: 048
  8. DILAUDID [Concomitant]
     Route: 048

REACTIONS (1)
  - Skin disorder [Unknown]
